FAERS Safety Report 4682040-0 (Version None)
Quarter: 2005Q2

REPORT INFORMATION
  Report Type: 
  Country: None (occurrence: None)
  Receive Date: 20050602
  Receipt Date: 20050519
  Transmission Date: 20051028
  Serious: Yes (Hospitalization)
  Sender: FDA-Public Use
  Company Number: B0327033A

PATIENT
  Age: 85 Year
  Sex: Female

DRUGS (5)
  1. LAMICTAL [Suspect]
     Indication: EPILEPSY
     Dosage: ORAL
     Route: 048
     Dates: start: 20030915, end: 20031027
  2. VALPROATE SODIUM [Suspect]
     Indication: EPILEPSY
     Dosage: 200 MG PER DAY/ORAL
     Route: 048
     Dates: start: 20031027, end: 20031031
  3. MIRTAZAPINE [Concomitant]
  4. LYSINE ASPIRIN [Concomitant]
  5. DONEPEZIL HCL [Concomitant]

REACTIONS (13)
  - BLOOD CREATINE PHOSPHOKINASE INCREASED [None]
  - BLOOD LACTATE DEHYDROGENASE INCREASED [None]
  - C-REACTIVE PROTEIN INCREASED [None]
  - DRUG CLEARANCE DECREASED [None]
  - DRUG HYPERSENSITIVITY [None]
  - EOSINOPHILIA [None]
  - ICHTHYOSIS [None]
  - INFLAMMATION [None]
  - MUSCLE ENZYME INCREASED [None]
  - PYREXIA [None]
  - RASH MACULO-PAPULAR [None]
  - RASH PRURITIC [None]
  - TOXIC SKIN ERUPTION [None]
